FAERS Safety Report 13153886 (Version 2)
Quarter: 2017Q1

REPORT INFORMATION
  Report Type: Spontaneous
  Country: GB (occurrence: GB)
  Receive Date: 20170126
  Receipt Date: 20170214
  Transmission Date: 20170428
  Serious: Yes (Other)
  Sender: FDA-Public Use
  Company Number: GB-BIOGEN-2017BI00347512

PATIENT
  Sex: Female
  Weight: 3.5 kg

DRUGS (4)
  1. TYSABRI [Suspect]
     Active Substance: NATALIZUMAB
     Indication: MATERNAL EXPOSURE TIMING UNSPECIFIED
     Route: 064
  2. TYSABRI [Suspect]
     Active Substance: NATALIZUMAB
     Route: 064
     Dates: start: 2014
  3. PREDNISOLONE. [Concomitant]
     Active Substance: PREDNISOLONE
     Indication: PRODUCT USED FOR UNKNOWN INDICATION
     Route: 064
  4. TYSABRI [Suspect]
     Active Substance: NATALIZUMAB
     Route: 064
     Dates: end: 20131219

REACTIONS (2)
  - Jaundice neonatal [Recovered/Resolved]
  - Foetal exposure timing unspecified [Recovered/Resolved]
